FAERS Safety Report 15584055 (Version 1)
Quarter: 2018Q4

REPORT INFORMATION
  Report Type: Spontaneous
  Country: US (occurrence: US)
  Receive Date: 20181105
  Receipt Date: 20181105
  Transmission Date: 20190205
  Serious: No
  Sender: FDA-Public Use
  Company Number: None

PATIENT
  Age: 64 Year
  Sex: Female
  Weight: 54.9 kg

DRUGS (8)
  1. METOPROLOL SUCCINATE 50MG [Concomitant]
     Active Substance: METOPROLOL SUCCINATE
  2. ZYRTEC ALLERGY AND CONGESTION. 5-120MG [Concomitant]
  3. IMBRUVICA [Suspect]
     Active Substance: IBRUTINIB
     Indication: CHRONIC LYMPHOCYTIC LEUKAEMIA
     Route: 048
     Dates: start: 20160610, end: 20181105
  4. LISINOPRIL. [Concomitant]
     Active Substance: LISINOPRIL
  5. OMEPRAZOLE 20MG [Concomitant]
     Active Substance: OMEPRAZOLE
  6. PRAVASTATIN. [Concomitant]
     Active Substance: PRAVASTATIN
  7. ASPIRIN 81MG [Concomitant]
     Active Substance: ASPIRIN
  8. LEVAQUIN [Concomitant]
     Active Substance: LEVOFLOXACIN

REACTIONS (1)
  - Rash pruritic [None]

NARRATIVE: CASE EVENT DATE: 20181001
